FAERS Safety Report 4558139-6 (Version None)
Quarter: 2005Q1

REPORT INFORMATION
  Report Type: 
  Country: None (occurrence: None)
  Receive Date: 20050121
  Receipt Date: 20050113
  Transmission Date: 20050727
  Serious: Yes (Hospitalization)
  Sender: FDA-Public Use
  Company Number: 200510173FR

PATIENT
  Age: 91 Year
  Sex: Male

DRUGS (3)
  1. TRIATEC [Suspect]
     Route: 048
  2. LASILIX [Suspect]
     Route: 048
  3. ALDACTONE [Suspect]
     Indication: CARDIAC FAILURE
     Route: 048

REACTIONS (2)
  - RENAL FAILURE ACUTE [None]
  - TREATMENT NONCOMPLIANCE [None]
